FAERS Safety Report 7592892-2 (Version None)
Quarter: 2011Q3

REPORT INFORMATION
  Report Type: 
  Country: None (occurrence: None)
  Receive Date: 20110706
  Receipt Date: 20110622
  Transmission Date: 20111222
  Serious: Yes (Other)
  Sender: FDA-Public Use
  Company Number: US-CELGENEUS-163-21880-11063117

PATIENT
  Sex: Female
  Weight: 62.652 kg

DRUGS (2)
  1. CHEMOTHERAPY [Suspect]
     Route: 051
  2. REVLIMID [Suspect]
     Indication: MULTIPLE MYELOMA
     Dosage: 15 MILLIGRAM
     Route: 048
     Dates: start: 20110401

REACTIONS (1)
  - FLUID RETENTION [None]
